FAERS Safety Report 5375828-4 (Version None)
Quarter: 2007Q3

REPORT INFORMATION
  Report Type: 
  Country: None (occurrence: None)
  Receive Date: 20070702
  Receipt Date: 20070626
  Transmission Date: 20080115
  Serious: Yes (Other)
  Sender: FDA-Public Use
  Company Number: PHEH2007US08697

PATIENT
  Age: 50 Year
  Sex: Male

DRUGS (3)
  1. DIOVAN [Suspect]
     Indication: HYPERTENSION
     Dosage: 160 MG, QD
     Route: 048
     Dates: start: 20061001, end: 20061001
  2. DIOVAN [Suspect]
     Dosage: 80 MG, QD
     Route: 048
     Dates: start: 20070101
  3. NEXIUM [Concomitant]
     Dosage: UNK, UNK

REACTIONS (8)
  - BACK PAIN [None]
  - BLOOD PRESSURE DECREASED [None]
  - CATHETERISATION CARDIAC [None]
  - CHEST DISCOMFORT [None]
  - DYSPNOEA [None]
  - HEART RATE INCREASED [None]
  - HYPERSENSITIVITY [None]
  - THROAT IRRITATION [None]
